FAERS Safety Report 5343669-X (Version None)
Quarter: 2007Q2

REPORT INFORMATION
  Report Type: 
  Country: None (occurrence: None)
  Receive Date: 20070531
  Receipt Date: 20070525
  Transmission Date: 20071010
  Serious: Yes (Death)
  Sender: FDA-Public Use
  Company Number: 163-21880-07051455

PATIENT
  Age: 76 Year
  Sex: Female

DRUGS (1)
  1. REVLIMID (LENALIDOMIDE) (100 MILLIGRAM, CAPSULES) [Suspect]
     Indication: MYELODYSPLASTIC SYNDROME
     Dosage: 10 MG, 1 IN 1 D, ORAL
     Route: 048
     Dates: start: 20070514

REACTIONS (1)
  - DEATH [None]
